FAERS Safety Report 16826840 (Version 1)
Quarter: 2019Q3

REPORT INFORMATION
  Report Type: Spontaneous
  Country: JP (occurrence: JP)
  Receive Date: 20190919
  Receipt Date: 20190919
  Transmission Date: 20191005
  Serious: Yes (Hospitalization, Other)
  Sender: FDA-Public Use
  Company Number: JP-ROCHE-2410259

PATIENT
  Age: 46 Year
  Sex: Male

DRUGS (2)
  1. FOSCARNET SODIUM. [Suspect]
     Active Substance: FOSCARNET SODIUM
     Indication: HUMAN HERPESVIRUS 6 ENCEPHALITIS
     Route: 065
  2. GANCICLOVIR. [Suspect]
     Active Substance: GANCICLOVIR
     Indication: HUMAN HERPESVIRUS 6 ENCEPHALITIS
     Route: 065

REACTIONS (10)
  - Delirium [Unknown]
  - Pruritus generalised [Not Recovered/Not Resolved]
  - Pain [Unknown]
  - Off label use [Unknown]
  - Screaming [Not Recovered/Not Resolved]
  - Pneumonia [Unknown]
  - Pancreatitis acute [Unknown]
  - Intentional product use issue [Unknown]
  - Hyperhidrosis [Unknown]
  - Psychomotor hyperactivity [Unknown]
